FAERS Safety Report 11507944 (Version 1)
Quarter: 2015Q3

REPORT INFORMATION
  Report Type: Spontaneous
  Country: US (occurrence: None)
  Receive Date: 20150914
  Receipt Date: 20150914
  Transmission Date: 20151125
  Serious: Yes (Other)
  Sender: FDA-Public Use
  Company Number: None

PATIENT
  Age: 66 Year
  Sex: Female
  Weight: 68.04 kg

DRUGS (3)
  1. FLUTICASONE PROPIONATE. [Suspect]
     Active Substance: FLUTICASONE PROPIONATE
     Indication: UPPER-AIRWAY COUGH SYNDROME
     Dosage: 16G ONCE A DAY 4 TIMES SQUIRTED IN NOSE IN 4 DAYS
     Route: 045
  2. LUTEIN [Concomitant]
     Active Substance: LUTEIN
  3. ONE A DAY MULTIVITAMIN [Concomitant]

REACTIONS (1)
  - Anosmia [None]

NARRATIVE: CASE EVENT DATE: 20150822
